FAERS Safety Report 18310293 (Version 1)
Quarter: 2020Q3

REPORT INFORMATION
  Report Type: Report from Study
  Country: US (occurrence: US)
  Receive Date: 20200925
  Receipt Date: 20200925
  Transmission Date: 20201103
  Serious: Yes (Other)
  Sender: FDA-Public Use
  Company Number: US-BIOGEN-2020BI00892000

PATIENT
  Age: 51 Year
  Sex: Female

DRUGS (3)
  1. TECFIDERA [Suspect]
     Active Substance: DIMETHYL FUMARATE
     Indication: MULTIPLE SCLEROSIS
     Dosage: 1 CAPSULE OF 120 MG TWICE A DAY FOR 7 DAYS, THEN TAKE 1 CAPSULE OF 240 MG TWICE A DAY FOR 23 DAYS
     Route: 048
     Dates: start: 202006
  2. TECFIDERA [Suspect]
     Active Substance: DIMETHYL FUMARATE
     Route: 048
     Dates: start: 20200625
  3. TECFIDERA [Suspect]
     Active Substance: DIMETHYL FUMARATE
     Dosage: 23 DAYS AFTER 120 M DOSE
     Route: 048
     Dates: start: 202006

REACTIONS (22)
  - Hemiparesis [Unknown]
  - Musculoskeletal disorder [Unknown]
  - Vomiting [Unknown]
  - Arthralgia [Unknown]
  - Stress [Unknown]
  - Flushing [Unknown]
  - Anxiety [Unknown]
  - Bipolar disorder [Unknown]
  - Migraine [Unknown]
  - Vision blurred [Unknown]
  - Balance disorder [Unknown]
  - Cerebrovascular accident [Unknown]
  - Pain in extremity [Unknown]
  - Limb discomfort [Unknown]
  - Multiple sclerosis relapse [Not Recovered/Not Resolved]
  - Peripheral swelling [Unknown]
  - Gait inability [Unknown]
  - Blindness unilateral [Unknown]
  - Depression [Unknown]
  - Transient ischaemic attack [Unknown]
  - Product dose omission issue [Unknown]
  - Mental disorder [Unknown]

NARRATIVE: CASE EVENT DATE: 20200703
